FAERS Safety Report 8314155-X (Version None)
Quarter: 2012Q2

REPORT INFORMATION
  Report Type: 
  Country: None (occurrence: None)
  Receive Date: 20120426
  Receipt Date: 20111109
  Transmission Date: 20120825
  Serious: Yes (Hospitalization, Other)
  Sender: FDA-Public Use
  Company Number: PHEH2011US07672

PATIENT
  Sex: Male
  Weight: 26.3 kg

DRUGS (10)
  1. EXJADE [Suspect]
     Indication: IRON OVERLOAD
     Dosage: 750 MG, QD
     Route: 048
     Dates: start: 20080303
  2. AMOXIL [Concomitant]
     Dosage: 15.6 ML, UNK BY MOUTH
  3. MOTRIN [Concomitant]
     Dosage: 10 ML, Q6H BY MOUTH AS NEEDED
  4. FOLIC ACID [Concomitant]
     Dosage: 10 ML, QD BY MOUTH
  5. ZITHROMAX [Concomitant]
     Dosage: 7.5 ML, QD BY MOUTH
  6. GLYCOLAX [Concomitant]
     Dosage: 17 G, QD BY MOUTH
  7. PENICILLIN V POTASSIUM [Concomitant]
     Dosage: 5 ML, BID BY MOUTH
  8. HYDREA [Concomitant]
     Dosage: 7.5 ML, QD BY MOUTH
  9. EXJADE [Suspect]
     Dosage: 500 MG, QD
     Route: 048
     Dates: start: 20080303
  10. TYLENOL W/ CODEINE [Concomitant]
     Indication: PAIN
     Dosage: 5 ML BY MOUTH EVERY 6 HOURS FOR 3 DAYS AND THEN AS NEEDED

REACTIONS (3)
  - SICKLE CELL ANAEMIA [None]
  - DISEASE PROGRESSION [None]
  - LOBAR PNEUMONIA [None]
